FAERS Safety Report 6262797-8 (Version None)
Quarter: 2009Q3

REPORT INFORMATION
  Report Type: 
  Country: None (occurrence: None)
  Receive Date: 20090709
  Receipt Date: 20090702
  Transmission Date: 20100115
  Serious: Yes (Other)
  Sender: FDA-Public Use
  Company Number: GB-MERCK-0907GBR00009

PATIENT
  Age: 66 Year
  Sex: Male
  Weight: 88 kg

DRUGS (9)
  1. TIMOPTIC [Suspect]
     Indication: GLAUCOMA
     Route: 047
     Dates: start: 20080919, end: 20090102
  2. AMITRIPTYLINE HYDROCHLORIDE [Concomitant]
     Indication: SLEEP DISORDER
     Route: 065
  3. BENDROFLUMETHIAZIDE [Concomitant]
     Route: 065
  4. LATANOPROST [Concomitant]
     Route: 065
  5. NAPROXEN [Concomitant]
     Indication: PAIN IN EXTREMITY
     Route: 065
  6. OMEPRAZOLE [Concomitant]
     Indication: PROPHYLAXIS
     Route: 065
  7. ACETAMINOPHEN [Concomitant]
     Route: 065
  8. TAMSULOSIN HYDROCHLORIDE [Concomitant]
     Route: 065
  9. TRAMADOL HYDROCHLORIDE [Concomitant]
     Indication: PAIN
     Route: 065

REACTIONS (3)
  - FROSTBITE [None]
  - NAIL DISCOLOURATION [None]
  - PERIPHERAL ISCHAEMIA [None]
